FAERS Safety Report 6987615-1 (Version None)
Quarter: 2010Q3

REPORT INFORMATION
  Report Type: 
  Country: None (occurrence: None)
  Receive Date: 20100916
  Receipt Date: 20100909
  Transmission Date: 20110219
  Serious: Yes (Death, Hospitalization)
  Sender: FDA-Public Use
  Company Number: US-ALEXION-A201001141

PATIENT
  Sex: Male

DRUGS (11)
  1. SOLIRIS [Suspect]
     Indication: PAROXYSMAL NOCTURNAL HAEMOGLOBINURIA
     Dosage: STARTED A 'COUPLE OF YEARS AGO'
     Route: 042
  2. SOLIRIS [Suspect]
     Dosage: UNK
     Route: 042
     Dates: end: 20100729
  3. FOLIC ACID [Concomitant]
  4. CALCITRIOL [Concomitant]
  5. ATIVAN [Concomitant]
  6. POTASSIUM [Concomitant]
  7. LASIX [Concomitant]
  8. METOPROLOL TARTRATE [Concomitant]
  9. MINITRAN                           /00003201/ [Concomitant]
  10. VITAMIN B                          /90046501/ [Concomitant]
  11. VITAMIN E                          /00110501/ [Concomitant]

REACTIONS (6)
  - CARDIAC FAILURE CONGESTIVE [None]
  - FATIGUE [None]
  - GASTROINTESTINAL HAEMORRHAGE [None]
  - HAEMOLYSIS [None]
  - RENAL FAILURE ACUTE [None]
  - URINARY TRACT INFECTION [None]
